FAERS Safety Report 16725333 (Version 1)
Quarter: 2019Q4

REPORT INFORMATION
  Report Type: Spontaneous
  Country: US (occurrence: US)
  Receive Date: 20190820
  Receipt Date: 20190820
  Transmission Date: 20200122
  Serious: Yes (Life-Threatening, Disabling)
  Sender: FDA-Public Use
  Company Number: None

PATIENT
  Age: 57 Year
  Sex: Female
  Weight: 51.75 kg

DRUGS (1)
  1. CLONAZEPAM. [Suspect]
     Active Substance: CLONAZEPAM
     Indication: PANIC DISORDER
     Route: 048
     Dates: start: 20190801

REACTIONS (8)
  - Weight decreased [None]
  - Agoraphobia [None]
  - Drug ineffective [None]
  - Product complaint [None]
  - Irritability [None]
  - Product substitution issue [None]
  - Sleep deficit [None]
  - Night sweats [None]

NARRATIVE: CASE EVENT DATE: 20190815
